FAERS Safety Report 25423057 (Version 1)
Quarter: 2025Q2

REPORT INFORMATION
  Report Type: Spontaneous
  Country: US (occurrence: US)
  Receive Date: 20250611
  Receipt Date: 20250611
  Transmission Date: 20250717
  Serious: No
  Sender: VERTEX
  Company Number: US-VERTEX PHARMACEUTICALS-2025-009043

PATIENT
  Sex: Female

DRUGS (2)
  1. JOURNAVX [Suspect]
     Active Substance: SUZETRIGINE
     Indication: Pain
     Route: 048
     Dates: start: 20250526, end: 20250526
  2. JOURNAVX [Suspect]
     Active Substance: SUZETRIGINE
     Dosage: 50 MG, QD
     Route: 048
     Dates: start: 202505, end: 202505

REACTIONS (2)
  - Poor quality sleep [Unknown]
  - Product prescribing issue [Unknown]

NARRATIVE: CASE EVENT DATE: 20250526
